FAERS Safety Report 25469151 (Version 1)
Quarter: 2025Q2

REPORT INFORMATION
  Report Type: Spontaneous
  Country: EG (occurrence: EG)
  Receive Date: 20250623
  Receipt Date: 20250623
  Transmission Date: 20250716
  Serious: No
  Sender: SANDOZ
  Company Number: EG-SANDOZ-SDZ2025EG043203

PATIENT
  Sex: Male

DRUGS (1)
  1. OMNITROPE [Suspect]
     Active Substance: SOMATROPIN
     Indication: Short stature
     Route: 058

REACTIONS (3)
  - Expired device used [Unknown]
  - Product availability issue [Unknown]
  - Off label use [Unknown]
